FAERS Safety Report 7927051-4 (Version None)
Quarter: 2011Q4

REPORT INFORMATION
  Report Type: 
  Country: None (occurrence: None)
  Receive Date: 20111118
  Receipt Date: 20111107
  Transmission Date: 20120403
  Serious: Yes (Death, Hospitalization, Other)
  Sender: FDA-Public Use
  Company Number: GB-BRISTOL-MYERS SQUIBB COMPANY-16156978

PATIENT
  Age: 16 Year
  Sex: Male

DRUGS (12)
  1. ETOPOSIDE [Suspect]
     Indication: EWING'S SARCOMA
     Dosage: SOLUTION FOR INF
     Route: 042
  2. CYCLOPHOSPHAMIDE [Suspect]
     Indication: EWING'S SARCOMA
  3. VINCRISTINE [Suspect]
     Indication: EWING'S SARCOMA
     Dosage: SOLUTION FOR INF
     Route: 042
  4. TOPIRAMATE [Concomitant]
  5. PHOSPHATE-SANDOZ [Concomitant]
  6. IFOSFAMIDE [Suspect]
     Indication: EWING'S SARCOMA
     Dosage: SOLUTION FOR INF
     Route: 042
  7. SODIUM BICARBONATE [Concomitant]
  8. FENTANYL-100 [Concomitant]
     Dosage: TRANSDERMAL PATCH
     Route: 061
  9. DOXORUBICIN HCL [Suspect]
     Indication: EWING'S SARCOMA
     Dosage: SOLUTION FOR INF
     Route: 042
  10. DACTINOMYCIN [Suspect]
     Indication: EWING'S SARCOMA
     Dosage: SOLUTION FOR INF
     Route: 042
  11. POTASSIUM BICARBONATE [Concomitant]
  12. LOPERAMIDE HCL [Concomitant]

REACTIONS (6)
  - TUBULOINTERSTITIAL NEPHRITIS [None]
  - NEURALGIA [None]
  - RENAL TUBULAR ACIDOSIS [None]
  - ENTERITIS [None]
  - NEOPLASM MALIGNANT [None]
  - PANCREATITIS [None]
